FAERS Safety Report 15151911 (Version 3)
Quarter: 2018Q3

REPORT INFORMATION
  Report Type: Report from Study
  Country: GB (occurrence: GB)
  Receive Date: 20180717
  Receipt Date: 20180825
  Transmission Date: 20181010
  Serious: Yes (Other)
  Sender: FDA-Public Use
  Company Number: GB-BRISTOL-MYERS SQUIBB COMPANY-BMS-2018-065355

PATIENT
  Sex: Male

DRUGS (4)
  1. METFORMIN HYDROCHLORIDE. [Suspect]
     Active Substance: METFORMIN HYDROCHLORIDE
     Indication: PRODUCT USED FOR UNKNOWN INDICATION
     Route: 065
  2. PIRFENIDONE. [Suspect]
     Active Substance: PIRFENIDONE
     Indication: PRODUCT USED FOR UNKNOWN INDICATION
     Dosage: 2 DF, UNK
     Route: 048
  3. RANITIDINE                         /00550802/ [Concomitant]
     Indication: PRODUCT USED FOR UNKNOWN INDICATION
     Route: 065
  4. PIRFENIDONE. [Suspect]
     Active Substance: PIRFENIDONE
     Indication: IDIOPATHIC PULMONARY FIBROSIS
     Dosage: 2403 MG, QD
     Route: 048
     Dates: start: 20161220

REACTIONS (15)
  - Malaise [Unknown]
  - Nausea [Recovered/Resolved]
  - Depression [Unknown]
  - Gastrooesophageal reflux disease [Recovering/Resolving]
  - Pulmonary function test decreased [Unknown]
  - Productive cough [Unknown]
  - Ill-defined disorder [Unknown]
  - Abdominal distension [Recovering/Resolving]
  - Groin infection [Unknown]
  - Flatulence [Unknown]
  - Hiatus hernia [Unknown]
  - Gait inability [Unknown]
  - Dyspnoea [Recovering/Resolving]
  - Nasopharyngitis [Unknown]
  - Abdominal discomfort [Unknown]
